FAERS Safety Report 4350507-0 (Version None)
Quarter: 2004Q2

REPORT INFORMATION
  Report Type: 
  Country: None (occurrence: None)
  Receive Date: 20040429
  Receipt Date: 20040402
  Transmission Date: 20050107
  Serious: Yes (Hospitalization)
  Sender: FDA-Public Use
  Company Number: 7855

PATIENT
  Age: 15 Year
  Sex: Male

DRUGS (5)
  1. METHOTREXATE [Suspect]
     Indication: ACUTE LYMPHOCYTIC LEUKAEMIA
     Dosage: INJ/IT
     Dates: start: 19930901, end: 19940501
  2. DOXORUBICIN [Suspect]
     Indication: PROPHYLAXIS
     Dosage: INJ
     Dates: start: 19930901, end: 19940501
  3. CYTARABINE [Suspect]
     Indication: ACUTE LYMPHOCYTIC LEUKAEMIA
     Dates: start: 19930901, end: 19940501
  4. VINCRISTINE [Suspect]
     Indication: ACUTE LYMPHOCYTIC LEUKAEMIA
     Dates: start: 19930901, end: 19940501
  5. CYCLOPHOSPHAMIDE [Suspect]
     Indication: ACUTE LYMPHOCYTIC LEUKAEMIA
     Dates: start: 19930901, end: 19940501

REACTIONS (3)
  - BROWN-SEQUARD SYNDROME [None]
  - NEURILEMMOMA [None]
  - SPINAL CORD COMPRESSION [None]
